FAERS Safety Report 9851995 (Version 1)
Quarter: 2014Q1

REPORT INFORMATION
  Report Type: Spontaneous
  Country: US (occurrence: US)
  Receive Date: 20140129
  Receipt Date: 20140129
  Transmission Date: 20141002
  Serious: No
  Sender: FDA-Public Use
  Company Number: US-VIIV HEALTHCARE LIMITED-A1030349A

PATIENT
  Age: 57 Year
  Sex: Female

DRUGS (5)
  1. EPIVIR [Suspect]
     Indication: EXPOSURE TO COMMUNICABLE DISEASE
     Dosage: 150MG PER DAY
     Route: 048
     Dates: start: 20130429, end: 20130527
  2. RALTEGRAVIR [Concomitant]
  3. PLAQUENIL [Concomitant]
  4. LEXAPRO [Concomitant]
  5. PRILOSEC [Concomitant]

REACTIONS (1)
  - Alopecia [Unknown]
